FAERS Safety Report 5029229-9 (Version None)
Quarter: 2006Q2

REPORT INFORMATION
  Report Type: 
  Country: None (occurrence: None)
  Receive Date: 20060613
  Receipt Date: 20060531
  Transmission Date: 20061013
  Serious: Yes (Hospitalization)
  Sender: FDA-Public Use
  Company Number: 2006070655

PATIENT
  Age: 70 Year
  Sex: Male
  Weight: 83 kg

DRUGS (3)
  1. AMLODIPINE/ATORVASTATIN                  (ATORVASTATIN, AMLODIPINE) [Suspect]
     Indication: HYPERTENSION
     Dosage: 5MG/DAY (1 IN 1 D); ORAL
     Route: 048
     Dates: start: 20060403, end: 20060509
  2. DIAMICRON                   (GLICLAZIDE) [Concomitant]
  3. ALL OTHER THERAPEUTIC PRODUCTS [Concomitant]

REACTIONS (9)
  - ALCOHOL INTERACTION [None]
  - ALCOHOL POISONING [None]
  - ANOREXIA [None]
  - ATRIAL FIBRILLATION [None]
  - EPISTAXIS [None]
  - GENERAL PHYSICAL HEALTH DETERIORATION [None]
  - HEADACHE [None]
  - INSOMNIA [None]
  - PAIN IN EXTREMITY [None]
